APPROVED DRUG PRODUCT: TICLID
Active Ingredient: TICLOPIDINE HYDROCHLORIDE
Strength: 125MG
Dosage Form/Route: TABLET;ORAL
Application: N019979 | Product #001
Applicant: ROCHE PALO ALTO LLC
Approved: Mar 24, 1993 | RLD: No | RS: No | Type: DISCN